FAERS Safety Report 13144867 (Version 3)
Quarter: 2017Q2

REPORT INFORMATION
  Report Type: Spontaneous
  Country: BG (occurrence: BG)
  Receive Date: 20170124
  Receipt Date: 20170628
  Transmission Date: 20170830
  Serious: Yes (Life-Threatening, Hospitalization, Other)
  Sender: FDA-Public Use
  Company Number: BG-ELI_LILLY_AND_COMPANY-BG201701007560

PATIENT
  Age: 64 Year
  Sex: Male

DRUGS (4)
  1. DEXAMETHASON                       /00016001/ [Concomitant]
     Active Substance: DEXAMETHASONE
     Indication: PREMEDICATION
     Dosage: 20 MG, TWO HOUR BEFORE THE ERBITUX INFUSION
     Route: 042
     Dates: start: 20170112, end: 20170112
  2. ERBITUX [Suspect]
     Active Substance: CETUXIMAB
     Indication: SQUAMOUS CELL CARCINOMA OF THE HYPOPHARYNX
     Dosage: 600 MG (400MG/M2), UNKNOWN
     Route: 042
     Dates: start: 20170112, end: 20170112
  3. URBASON                            /00049601/ [Concomitant]
     Active Substance: METHYLPREDNISOLONE
     Indication: PREMEDICATION
     Dosage: 40 MG, HALF HOUR BEFORE THE ERBITUX INFUSION
     Route: 042
     Dates: start: 20170112, end: 20170112
  4. ANTIALLERSIN [Concomitant]
     Indication: PREMEDICATION
     Dosage: 50 (AMPULE), TWO HOUR BEFORE THE ERBITUX INFUSION
     Route: 042
     Dates: start: 20170112, end: 20170112

REACTIONS (5)
  - Vision blurred [Unknown]
  - Rash [Recovered/Resolved]
  - Pulse absent [Recovered/Resolved]
  - Circulatory collapse [Recovered/Resolved]
  - Cardiac arrest [Recovered/Resolved]

NARRATIVE: CASE EVENT DATE: 20170112
